FAERS Safety Report 7540297-2 (Version None)
Quarter: 2011Q2

REPORT INFORMATION
  Report Type: 
  Country: None (occurrence: None)
  Receive Date: 20110610
  Receipt Date: 20110603
  Transmission Date: 20111010
  Serious: Yes (Hospitalization)
  Sender: FDA-Public Use
  Company Number: PHHO2011US09601

PATIENT
  Sex: Male

DRUGS (3)
  1. CISPLATIN [Suspect]
     Indication: HEAD AND NECK CANCER
     Dosage: UNK
     Dates: start: 20110425
  2. DOCETAXEL [Concomitant]
     Indication: HEAD AND NECK CANCER
     Dosage: UNK
     Dates: start: 20110425
  3. AFINITOR [Suspect]
     Indication: HEAD AND NECK CANCER
     Dosage: 10 MG, QD
     Dates: start: 20110425, end: 20110502

REACTIONS (2)
  - RENAL FAILURE [None]
  - FEBRILE NEUTROPENIA [None]
